FAERS Safety Report 5119386-8 (Version None)
Quarter: 2006Q3

REPORT INFORMATION
  Report Type: 
  Country: None (occurrence: None)
  Receive Date: 20060928
  Receipt Date: 20060923
  Transmission Date: 20061208
  Serious: Yes (Other)
  Sender: FDA-Public Use
  Company Number: 2006114158

PATIENT
  Age: 15 Year
  Sex: Male

DRUGS (1)
  1. COOL MINT LISTERINE (MENTHOL, METHYL SALICYLATE, EUCALYPTOL, THYMOL) [Suspect]
     Indication: EUPHORIC MOOD
     Dosage: TWO 16 OZ BOTTLES, TWICE, ORAL
     Route: 048
     Dates: start: 20060901

REACTIONS (3)
  - DYSPEPSIA [None]
  - INCORRECT ROUTE OF DRUG ADMINISTRATION [None]
  - INTENTIONAL DRUG MISUSE [None]
